FAERS Safety Report 9675623 (Version 1)
Quarter: 2013Q4

REPORT INFORMATION
  Report Type: Spontaneous
  Country: IT (occurrence: IT)
  Receive Date: 20131107
  Receipt Date: 20131107
  Transmission Date: 20140711
  Serious: Yes (Other)
  Sender: FDA-Public Use
  Company Number: IT-PFIZER INC-2013316021

PATIENT
  Age: 50 Year
  Sex: Female
  Weight: 76 kg

DRUGS (5)
  1. IRINOTECAN HCL [Suspect]
     Indication: COLON CANCER
     Dosage: 290 MG, CYCLIC
     Route: 042
     Dates: start: 20130711, end: 20130711
  2. ATROPINE [Suspect]
     Indication: COLON CANCER METASTATIC
     Dosage: 0.5 MG, CYCLIC
     Route: 058
     Dates: start: 20130711, end: 20130711
  3. ZOFRAN [Concomitant]
  4. RANIDIL [Concomitant]
  5. SOLDESAM [Concomitant]

REACTIONS (5)
  - Vomiting [Recovered/Resolved]
  - Diarrhoea [Recovered/Resolved]
  - Hyperhidrosis [Recovered/Resolved]
  - Hypertension [Recovered/Resolved]
  - Pruritus [Recovered/Resolved]
